FAERS Safety Report 20957112 (Version 1)
Quarter: 2022Q2

REPORT INFORMATION
  Report Type: Spontaneous
  Country: US (occurrence: US)
  Receive Date: 20220614
  Receipt Date: 20220614
  Transmission Date: 20220721
  Serious: Yes (Hospitalization, Other)
  Sender: FDA-Public Use
  Company Number: US-MLMSERVICE-20220602-3590901-1

PATIENT
  Age: 24 Year
  Sex: Male

DRUGS (1)
  1. PREDNISONE [Suspect]
     Active Substance: PREDNISONE
     Indication: Dermatomyositis
     Route: 065

REACTIONS (7)
  - Osteolysis [Recovering/Resolving]
  - Submaxillary gland enlargement [Recovering/Resolving]
  - Lymphadenopathy [Recovering/Resolving]
  - Infection reactivation [Recovering/Resolving]
  - Disseminated coccidioidomycosis [Recovered/Resolved]
  - Coccidioidomycosis [Recovering/Resolving]
  - Pulmonary mass [Recovering/Resolving]
